FAERS Safety Report 8483598-6 (Version None)
Quarter: 2012Q3

REPORT INFORMATION
  Report Type: 
  Country: None (occurrence: None)
  Receive Date: 20120702
  Receipt Date: 20120627
  Transmission Date: 20120928
  Serious: Yes (Other)
  Sender: FDA-Public Use
  Company Number: SE-MERCK-1206USA05002

PATIENT
  Age: 78 Year
  Sex: Female

DRUGS (6)
  1. CYMBALTA [Concomitant]
     Route: 065
  2. FOSAMAX [Suspect]
     Indication: OSTEOPOROSIS
     Route: 048
     Dates: start: 20050101
  3. ALVEDON [Concomitant]
     Route: 065
  4. METHOTREXATE [Concomitant]
     Route: 065
  5. PREDNISOLONE [Concomitant]
     Route: 065
  6. ETORICOXIB MSD [Concomitant]
     Route: 048

REACTIONS (1)
  - PATHOLOGICAL FRACTURE [None]
